FAERS Safety Report 24963059 (Version 5)
Quarter: 2025Q4

REPORT INFORMATION
  Report Type: Spontaneous
  Country: JP (occurrence: JP)
  Receive Date: 20250213
  Receipt Date: 20251007
  Transmission Date: 20260118
  Serious: Yes (Other)
  Sender: BRISTOL-MYERS SQUIBB COMPANY
  Company Number: JP-ONO-2025JP002129

PATIENT
  Age: 64 Year
  Sex: Male
  Weight: 56 kg

DRUGS (11)
  1. YERVOY [Suspect]
     Active Substance: IPILIMUMAB
     Indication: Malignant melanoma
     Dosage: 4 TIMES
     Dates: start: 20181025, end: 20181213
  2. OPDIVO [Suspect]
     Active Substance: NIVOLUMAB
     Indication: Malignant melanoma
     Dosage: 4 TIMES
     Dates: start: 20181025, end: 20181213
  3. OPDIVO [Suspect]
     Active Substance: NIVOLUMAB
     Dosage: 44 TIMES
     Dates: start: 20190129, end: 20201027
  4. DACARBAZINE [Suspect]
     Active Substance: DACARBAZINE
     Indication: Malignant melanoma
     Dates: start: 20161017, end: 20161017
  5. DACARBAZINE [Suspect]
     Active Substance: DACARBAZINE
     Dates: start: 20160912, end: 20160912
  6. VINCRISTINE [Suspect]
     Active Substance: VINCRISTINE
     Indication: Malignant melanoma
     Dates: start: 20161017, end: 20161017
  7. VINCRISTINE [Suspect]
     Active Substance: VINCRISTINE
     Dates: start: 20160912, end: 20160912
  8. INTERFERON [Suspect]
     Active Substance: INTERFERON
     Indication: Malignant melanoma
     Dates: start: 20161017, end: 20161017
  9. INTERFERON [Suspect]
     Active Substance: INTERFERON
     Dates: start: 20160912, end: 20160912
  10. NIMUSTINE [Suspect]
     Active Substance: NIMUSTINE
     Indication: Malignant melanoma
     Dates: start: 20161017, end: 20161017
  11. NIMUSTINE [Suspect]
     Active Substance: NIMUSTINE
     Dates: start: 20160912, end: 20160912

REACTIONS (3)
  - Deep vein thrombosis [Recovering/Resolving]
  - Off label use [Unknown]
  - Congestive hepatopathy [Recovering/Resolving]

NARRATIVE: CASE EVENT DATE: 20181025
